FAERS Safety Report 6754848-9 (Version None)
Quarter: 2010Q2

REPORT INFORMATION
  Report Type: 
  Country: None (occurrence: None)
  Receive Date: 20100603
  Receipt Date: 20100531
  Transmission Date: 20101027
  Serious: Yes (Death, Hospitalization)
  Sender: FDA-Public Use
  Company Number: SE-MERCK-1005SWE00026

PATIENT
  Age: 71 Year
  Sex: Male

DRUGS (9)
  1. COZAAR [Suspect]
     Indication: ESSENTIAL HYPERTENSION
     Route: 048
     Dates: end: 20100517
  2. PAMOL [Concomitant]
     Route: 065
  3. MODURETIC 5-50 [Concomitant]
     Route: 065
  4. TROMBYL [Concomitant]
     Route: 065
  5. METFORMIN [Suspect]
     Indication: DIABETES MELLITUS
     Route: 047
     Dates: end: 20100317
  6. SIMVASTATIN [Concomitant]
     Route: 065
  7. PERSANTINE [Concomitant]
     Route: 065
  8. LOGIMAX [Concomitant]
     Route: 065
  9. INSULATARD (INSULIN HUMAN, ISOPHANE) [Concomitant]
     Route: 065

REACTIONS (2)
  - LACTIC ACIDOSIS [None]
  - RENAL FAILURE ACUTE [None]
